FAERS Safety Report 18488303 (Version 2)
Quarter: 2021Q4

REPORT INFORMATION
  Report Type: Spontaneous
  Country: US (occurrence: US)
  Receive Date: 20201111
  Receipt Date: 20211019
  Transmission Date: 20220303
  Serious: No
  Sender: FDA-Public Use
  Company Number: US-HORIZON-2020HZN00920

PATIENT
  Sex: Male

DRUGS (1)
  1. PROCYSBI [Suspect]
     Active Substance: CYSTEAMINE BITARTRATE
     Indication: Cystinosis
     Dosage: TAKE 50 MG (2 X 25MG CAPSULES) BY MOUTH TWICE DAILY. TOTAL DAILY DOSE IS 100 MG
     Route: 048

REACTIONS (1)
  - Gastrooesophageal reflux disease [Unknown]
